FAERS Safety Report 7075950-0 (Version None)
Quarter: 2010Q4

REPORT INFORMATION
  Report Type: 
  Country: None (occurrence: None)
  Receive Date: 20101101
  Receipt Date: 20101021
  Transmission Date: 20110411
  Serious: No
  Sender: FDA-Public Use
  Company Number: US-BIOGENIDEC-2010BI037329

PATIENT
  Sex: Female

DRUGS (1)
  1. TYSABRI [Suspect]
     Route: 042

REACTIONS (1)
  - PNEUMONIA [None]
